FAERS Safety Report 10549833 (Version 2)
Quarter: 2014Q4

REPORT INFORMATION
  Report Type: Spontaneous
  Country: GB (occurrence: GB)
  Receive Date: 20141028
  Receipt Date: 20141031
  Transmission Date: 20150529
  Serious: Yes (Other)
  Sender: FDA-Public Use
  Company Number: GB-ASTRAZENECA-2014SE79413

PATIENT
  Age: 49 Year
  Sex: Female
  Weight: 46.7 kg

DRUGS (2)
  1. ESCITALOPRAM [Suspect]
     Active Substance: ESCITALOPRAM OXALATE
     Indication: DEPRESSION
     Route: 065
  2. OMEPRAZOLE. [Suspect]
     Active Substance: OMEPRAZOLE
     Indication: GASTRITIS
     Route: 048
     Dates: start: 20140820, end: 20141007

REACTIONS (5)
  - Serotonin syndrome [Recovering/Resolving]
  - Insomnia [Unknown]
  - Labelled drug-drug interaction medication error [Unknown]
  - Mental disorder [Unknown]
  - Dyskinesia [Unknown]
